FAERS Safety Report 8562990-5 (Version None)
Quarter: 2012Q3

REPORT INFORMATION
  Report Type: 
  Country: None (occurrence: None)
  Receive Date: 20120802
  Receipt Date: 20120722
  Transmission Date: 20120928
  Serious: Yes (Other)
  Sender: FDA-Public Use
  Company Number: US-AMGEN-USASP2012045555

PATIENT
  Age: 41 Year
  Sex: Female

DRUGS (1)
  1. ENBREL [Suspect]
     Indication: RHEUMATOID ARTHRITIS
     Dosage: 50 MG, QWK
     Dates: start: 20120315, end: 20120503

REACTIONS (6)
  - CHEST DISCOMFORT [None]
  - HEART RATE INCREASED [None]
  - URTICARIA [None]
  - HYPERSENSITIVITY [None]
  - RASH MACULAR [None]
  - DYSPNOEA [None]
